FAERS Safety Report 6662593-3 (Version None)
Quarter: 2010Q1

REPORT INFORMATION
  Report Type: 
  Country: None (occurrence: None)
  Receive Date: 20100329
  Receipt Date: 20100319
  Transmission Date: 20100710
  Serious: Yes (Death)
  Sender: FDA-Public Use
  Company Number: 543086

PATIENT
  Age: 22 Year
  Sex: Male

DRUGS (10)
  1. FLUDARABINE PHOSPHATE [Suspect]
     Indication: IMMUNOSUPPRESSANT DRUG THERAPY
     Dosage: 30 MG/M2, UNKNOWN, INTRAVENOUS
     Route: 042
  2. METHOTREXATE [Suspect]
     Indication: GRAFT VERSUS HOST DISEASE
  3. CAMPATH [Suspect]
     Indication: T-CELL DEPLETION
     Dosage: 10 MG, UNKNOWN, UNKNOWN
  4. MELPHALAN HYDROCHLORIDE [Suspect]
     Indication: IMMUNOSUPPRESSANT DRUG THERAPY
     Dosage: 70 MG/M2, UNKNOWN, UNKNOWN
  5. CYCLOSPORINE [Suspect]
     Indication: GRAFT VERSUS HOST DISEASE
  6. (FACTOR VIII) [Concomitant]
  7. TRANEXAMIC ACID [Concomitant]
  8. (FACTOR VIIA) [Concomitant]
  9. FEIBA [Concomitant]
  10. (ANTIBIOTICS) [Concomitant]

REACTIONS (5)
  - CARDIAC ARREST [None]
  - GENERAL PHYSICAL HEALTH DETERIORATION [None]
  - HYPOTENSION [None]
  - KLEBSIELLA SEPSIS [None]
  - QUALITY OF LIFE DECREASED [None]
